FAERS Safety Report 6462322-2 (Version None)
Quarter: 2009Q4

REPORT INFORMATION
  Report Type: 
  Country: None (occurrence: None)
  Receive Date: 20091130
  Receipt Date: 20091013
  Transmission Date: 20100525
  Serious: No
  Sender: FDA-Public Use
  Company Number: US-BAYER-200938080NA

PATIENT
  Age: 73 Year
  Sex: Male

DRUGS (2)
  1. MAGNEVIST [Suspect]
     Indication: ANGIOGRAM
     Dosage: TOTAL DAILY DOSE: 34 ML
     Dates: start: 20091013, end: 20091013
  2. COUMADIN [Concomitant]

REACTIONS (3)
  - BURNING SENSATION [None]
  - PRURITUS [None]
  - URTICARIA [None]
